FAERS Safety Report 21190931 (Version 1)
Quarter: 2022Q3

REPORT INFORMATION
  Report Type: Spontaneous
  Country: US (occurrence: None)
  Receive Date: 20220809
  Receipt Date: 20220809
  Transmission Date: 20221026
  Serious: No
  Sender: FDA-Public Use
  Company Number: None

PATIENT
  Sex: Female

DRUGS (9)
  1. HUMIRA [Suspect]
     Active Substance: ADALIMUMAB
     Route: 058
     Dates: start: 20210325
  2. AZITHROMYCIN TAB [Concomitant]
  3. FLUOXETINE CAP [Concomitant]
  4. FOLIC ACID TAB [Concomitant]
  5. LEUCOVOR CA [Concomitant]
  6. METHOTREXATE [Concomitant]
     Active Substance: METHOTREXATE
  7. PREDNISONE [Concomitant]
     Active Substance: PREDNISONE
  8. PREDNISONE [Concomitant]
     Active Substance: PREDNISONE
  9. PROMETH/COD SYP [Concomitant]

REACTIONS (2)
  - Pain [None]
  - Condition aggravated [None]
